FAERS Safety Report 25588213 (Version 1)
Quarter: 2025Q3

REPORT INFORMATION
  Report Type: Spontaneous
  Country: IN (occurrence: IN)
  Receive Date: 20250722
  Receipt Date: 20250722
  Transmission Date: 20251021
  Serious: Yes (Other)
  Sender: Unknown Manufacturer
  Company Number: IN-STRIDES ARCOLAB LIMITED-2025OS000134

PATIENT
  Age: 96 Year
  Sex: Male

DRUGS (12)
  1. AMANTADINE [Suspect]
     Active Substance: AMANTADINE
     Indication: Neuropsychological symptoms
     Route: 065
  2. PIPERACILLIN SODIUM\TAZOBACTAM SODIUM [Suspect]
     Active Substance: PIPERACILLIN SODIUM\TAZOBACTAM SODIUM
     Indication: Mouth ulceration
     Route: 065
  3. ARMODAFINIL [Suspect]
     Active Substance: ARMODAFINIL
     Indication: Neuropsychological symptoms
     Route: 065
  4. MEMANTINE [Suspect]
     Active Substance: MEMANTINE
     Indication: Neuropsychological symptoms
     Route: 065
  5. RASAGILINE [Suspect]
     Active Substance: RASAGILINE
     Indication: Neuropsychological symptoms
     Route: 065
  6. TRIHEXYPHENIDYL [Suspect]
     Active Substance: TRIHEXYPHENIDYL
     Indication: Neuropsychological symptoms
     Route: 065
  7. PREGABALIN [Interacting]
     Active Substance: PREGABALIN
     Indication: Pain in extremity
     Route: 048
  8. DULOXETINE [Interacting]
     Active Substance: DULOXETINE
     Indication: Feeling cold
     Route: 065
  9. QUETIAPINE [Concomitant]
     Active Substance: QUETIAPINE
     Indication: Neuropsychological symptoms
     Route: 065
  10. QUETIAPINE [Concomitant]
     Active Substance: QUETIAPINE
     Route: 065
  11. DONEPEZIL [Concomitant]
     Active Substance: DONEPEZIL
     Indication: Neuropsychological symptoms
     Route: 065
  12. ACETAMINOPHEN [Concomitant]
     Active Substance: ACETAMINOPHEN
     Indication: Pyrexia
     Route: 065

REACTIONS (2)
  - Condition aggravated [None]
  - Off label use [Unknown]
